FAERS Safety Report 5908613-2 (Version None)
Quarter: 2008Q4

REPORT INFORMATION
  Report Type: 
  Country: None (occurrence: None)
  Receive Date: 20081001
  Receipt Date: 20080924
  Transmission Date: 20090506
  Serious: No
  Sender: FDA-Public Use
  Company Number: APP200800867

PATIENT
  Age: 24 Year
  Sex: Female
  Weight: 75 kg

DRUGS (1)
  1. OXYTOCIN [Suspect]
     Indication: LABOUR INDUCTION
     Dosage: 30 UNITS/500 ML (RATE OF 5 MU/MINUTE), INTRAVENOUS DRIP
     Route: 041
     Dates: start: 20080923, end: 20080923

REACTIONS (4)
  - CAESAREAN SECTION [None]
  - DRUG EFFECT INCREASED [None]
  - DRUG EXPOSURE DURING PREGNANCY [None]
  - UTERINE CONTRACTIONS ABNORMAL [None]
